FAERS Safety Report 19268836 (Version 1)
Quarter: 2021Q2

REPORT INFORMATION
  Report Type: Report from Study
  Country: CA (occurrence: CA)
  Receive Date: 20210517
  Receipt Date: 20210517
  Transmission Date: 20210717
  Serious: Yes (Other)
  Sender: FDA-Public Use
  Company Number: CA-PFIZER INC-2021494263

PATIENT
  Sex: Female
  Weight: 52 kg

DRUGS (26)
  1. AMLODIPINE BESILATE [Concomitant]
     Active Substance: AMLODIPINE BESYLATE
     Route: 048
  2. SODIUM FERRIC GLUCONATE COMPLEX. [Concomitant]
     Active Substance: SODIUM FERRIC GLUCONATE COMPLEX
     Route: 042
  3. FERROUS FUMARATE [Concomitant]
     Active Substance: FERROUS FUMARATE
     Route: 048
  4. SODIUM CITRATE. [Concomitant]
     Active Substance: SODIUM CITRATE
  5. VITAMIN C [Concomitant]
     Active Substance: ASCORBIC ACID
  6. HEPARIN [Concomitant]
     Active Substance: HEPARIN SODIUM
     Route: 042
  7. LEVETIRACETAM. [Concomitant]
     Active Substance: LEVETIRACETAM
     Route: 048
  8. SEVELAMER HYDROCHLORIDE. [Concomitant]
     Active Substance: SEVELAMER HYDROCHLORIDE
     Route: 048
  9. CALCIUM [Concomitant]
     Active Substance: CALCIUM
     Route: 048
  10. HYDROXYCHLOROQUINE SULFATE. [Concomitant]
     Active Substance: HYDROXYCHLOROQUINE SULFATE
  11. IRON [Concomitant]
     Active Substance: IRON
  12. TELMISARTAN. [Concomitant]
     Active Substance: TELMISARTAN
     Route: 048
  13. RITUXIMAB. [Suspect]
     Active Substance: RITUXIMAB
     Indication: END STAGE RENAL DISEASE
  14. AZATHIOPRINE. [Concomitant]
     Active Substance: AZATHIOPRINE
     Route: 048
  15. BACITRACIN ZINC/GRAMICIDIN/LIDOCAINE/POLYMYXIN B SULFATE [Concomitant]
  16. BENADRYL [Concomitant]
     Active Substance: DIPHENHYDRAMINE HYDROCHLORIDE
     Route: 048
  17. METHYLPREDNISOLONE SODIUM SUCCINATE. [Concomitant]
     Active Substance: METHYLPREDNISOLONE SODIUM SUCCINATE
     Route: 042
  18. TYLENOL [Concomitant]
     Active Substance: ACETAMINOPHEN
     Route: 048
  19. FOLIC ACID. [Concomitant]
     Active Substance: FOLIC ACID
     Route: 048
  20. PANTOPRAZOLE [Concomitant]
     Active Substance: PANTOPRAZOLE
     Route: 048
  21. PREDNISONE. [Concomitant]
     Active Substance: PREDNISONE
     Route: 065
  22. TRANEXAMIC ACID. [Concomitant]
     Active Substance: TRANEXAMIC ACID
     Route: 048
  23. RITUXIMAB. [Suspect]
     Active Substance: RITUXIMAB
     Indication: MICROSCOPIC POLYANGIITIS
     Dosage: UNK, WEEKLY
     Route: 042
  24. RITUXIMAB. [Suspect]
     Active Substance: RITUXIMAB
     Indication: MICROSCOPIC POLYANGIITIS
     Dosage: 500 MG
     Route: 042
  25. RITUXIMAB. [Suspect]
     Active Substance: RITUXIMAB
     Indication: END STAGE RENAL DISEASE
  26. BIOTIN [Concomitant]
     Active Substance: BIOTIN
     Route: 048

REACTIONS (1)
  - Weight decreased [Unknown]
